FAERS Safety Report 21358848 (Version 6)
Quarter: 2023Q1

REPORT INFORMATION
  Report Type: Report from Study
  Country: US (occurrence: US)
  Receive Date: 20220921
  Receipt Date: 20230302
  Transmission Date: 20230417
  Serious: No
  Sender: FDA-Public Use
  Company Number: US-NOVARTISTESTPH-NVSC2022US212643

PATIENT
  Sex: Female

DRUGS (1)
  1. KISQALI [Suspect]
     Active Substance: RIBOCICLIB
     Indication: Product used for unknown indication
     Dosage: 600 MG (AS NEEDED)
     Route: 048

REACTIONS (14)
  - Abdominal discomfort [Unknown]
  - Feeling abnormal [Unknown]
  - Helicobacter infection [Unknown]
  - Drug hypersensitivity [Unknown]
  - Chills [Unknown]
  - Influenza like illness [Unknown]
  - Hepatic enzyme increased [Recovering/Resolving]
  - Decreased appetite [Unknown]
  - Nausea [Unknown]
  - Rash [Unknown]
  - Fatigue [Unknown]
  - Pyrexia [Unknown]
  - Liver disorder [Recovering/Resolving]
  - Product prescribing error [Recovering/Resolving]
